FAERS Safety Report 14115842 (Version 2)
Quarter: 2017Q4

REPORT INFORMATION
  Report Type: Spontaneous
  Country: US (occurrence: US)
  Receive Date: 20171023
  Receipt Date: 20171107
  Transmission Date: 20180321
  Serious: No
  Sender: FDA-Public Use
  Company Number: US-ELI_LILLY_AND_COMPANY-US201710001909

PATIENT
  Sex: Female

DRUGS (1)
  1. BASAGLAR [Suspect]
     Active Substance: INSULIN GLARGINE
     Indication: TYPE 2 DIABETES MELLITUS
     Dosage: 30 IU, BID
     Route: 058
     Dates: start: 201702

REACTIONS (1)
  - Erythema [Unknown]

NARRATIVE: CASE EVENT DATE: 201710
